FAERS Safety Report 11010106 (Version 1)
Quarter: 2015Q2

REPORT INFORMATION
  Report Type: Spontaneous
  Country: US (occurrence: US)
  Receive Date: 20150410
  Receipt Date: 20150410
  Transmission Date: 20150821
  Serious: Yes (Other)
  Sender: FDA-Public Use
  Company Number: US-BAYER-2015-099748

PATIENT
  Age: 20 Year
  Sex: Female

DRUGS (1)
  1. MIRENA [Suspect]
     Active Substance: LEVONORGESTREL
     Indication: CONTRACEPTION
     Dosage: 20 MCG/24HR, CONT
     Route: 015
     Dates: start: 201306, end: 201410

REACTIONS (6)
  - Abdominal pain lower [None]
  - Seizure [None]
  - Seizure [None]
  - Back pain [None]
  - Seizure [None]
  - Mood altered [None]

NARRATIVE: CASE EVENT DATE: 201406
